FAERS Safety Report 24068855 (Version 2)
Quarter: 2024Q3

REPORT INFORMATION
  Report Type: Report from Study
  Country: CN (occurrence: CN)
  Receive Date: 20240710
  Receipt Date: 20240710
  Transmission Date: 20241017
  Serious: No
  Sender: ROCHE
  Company Number: CN-ROCHE-3301252

PATIENT
  Age: 53 Year
  Sex: Female

DRUGS (13)
  1. ALECTINIB [Suspect]
     Active Substance: ALECTINIB
     Indication: Non-small cell lung cancer metastatic
     Route: 048
     Dates: start: 20220401
  2. JIAN GAN LE KE LI [Concomitant]
     Dosage: FREQUENCY TEXT:PRN
     Route: 048
     Dates: start: 20220527, end: 202210
  3. ETIMICIN SULFATE [Concomitant]
     Active Substance: ETIMICIN SULFATE
     Indication: Pneumonia fungal
     Route: 042
     Dates: start: 20230224, end: 20230302
  4. PIPERACILLIN AND TAZOBACTAM [Concomitant]
     Active Substance: PIPERACILLIN SODIUM\TAZOBACTAM SODIUM
     Indication: Pneumonia fungal
     Route: 042
     Dates: start: 20230224, end: 20230302
  5. PENICILLIN G SODIUM [Concomitant]
     Active Substance: PENICILLIN G SODIUM
     Indication: Pneumonia fungal
     Route: 058
     Dates: start: 20230224, end: 20230224
  6. VORICONAZOLE [Concomitant]
     Active Substance: VORICONAZOLE
     Indication: Pneumonia fungal
     Route: 048
     Dates: start: 20230302, end: 202306
  7. VORICONAZOLE [Concomitant]
     Active Substance: VORICONAZOLE
     Route: 048
     Dates: start: 20231013
  8. THYMOPEPTIDES [Concomitant]
     Indication: Pneumonia fungal
     Route: 048
     Dates: start: 20230302, end: 202306
  9. THYMOPEPTIDES [Concomitant]
     Route: 048
     Dates: start: 20231013
  10. LIDOCAINE HYDROCHLORIDE [Concomitant]
     Active Substance: LIDOCAINE HYDROCHLORIDE
     Route: 065
     Dates: start: 20230224, end: 20230224
  11. BICYCLOL [Concomitant]
     Active Substance: BICYCLOL
     Route: 048
     Dates: start: 20230406, end: 202305
  12. WU ZHI DI WAN [Concomitant]
     Indication: Hepatic function abnormal
     Route: 048
     Dates: start: 20230519, end: 202306
  13. URSODIOL [Concomitant]
     Active Substance: URSODIOL
     Indication: Blood bilirubin increased
     Route: 048
     Dates: start: 20231012

REACTIONS (1)
  - Rash [Not Recovered/Not Resolved]

NARRATIVE: CASE EVENT DATE: 20221001
